FAERS Safety Report 6372996-2 (Version None)
Quarter: 2009Q3

REPORT INFORMATION
  Report Type: 
  Country: None (occurrence: None)
  Receive Date: 20090924
  Receipt Date: 20081219
  Transmission Date: 20100115
  Serious: No
  Sender: FDA-Public Use
  Company Number: US-ASTRAZENECA-2008UW28448

PATIENT
  Age: 84 Year
  Sex: Male
  Weight: 76.7 kg

DRUGS (5)
  1. SEROQUEL [Suspect]
     Indication: AFFECTIVE DISORDER
     Route: 048
     Dates: start: 20081218
  2. PREDNISONE [Concomitant]
  3. METOPROLOL TARTRATE [Concomitant]
  4. AGRANOX [Concomitant]
  5. KETAKONAZOLE [Concomitant]

REACTIONS (4)
  - AGGRESSION [None]
  - HEART RATE INCREASED [None]
  - IRRITABILITY [None]
  - TREMOR [None]
